FAERS Safety Report 15289568 (Version 2)
Quarter: 2018Q3

REPORT INFORMATION
  Report Type: Report from Study
  Country: US (occurrence: US)
  Receive Date: 20180817
  Receipt Date: 20180904
  Transmission Date: 20181010
  Serious: Yes (Death)
  Sender: FDA-Public Use
  Company Number: US-PFIZER INC-2018331602

PATIENT
  Age: 43 Year
  Sex: Female

DRUGS (2)
  1. GABAPENTIN. [Suspect]
     Active Substance: GABAPENTIN
     Dosage: UNK
  2. ALPRAZOLAM. [Suspect]
     Active Substance: ALPRAZOLAM
     Dosage: UNK

REACTIONS (8)
  - Electrocardiogram QRS complex prolonged [Fatal]
  - Toxicity to various agents [Fatal]
  - Brain death [Fatal]
  - Myocardial ischaemia [Fatal]
  - Anion gap [Fatal]
  - Electrocardiogram QT prolonged [Fatal]
  - Respiratory depression [Fatal]
  - Metabolic acidosis [Fatal]
